FAERS Safety Report 7786338-9 (Version None)
Quarter: 2011Q3

REPORT INFORMATION
  Report Type: 
  Country: None (occurrence: None)
  Receive Date: 20110929
  Receipt Date: 20110926
  Transmission Date: 20111222
  Serious: Yes (Life-Threatening, Hospitalization, Other)
  Sender: FDA-Public Use
  Company Number: PHHY2011ES85008

PATIENT
  Age: 86 Year
  Sex: Female

DRUGS (2)
  1. CIPROFLOXACIN [Interacting]
     Dosage: UNK UKN, UNK
     Route: 048
     Dates: start: 20110607
  2. DIOVAN HCT [Suspect]
     Indication: HYPERTENSION
     Dosage: UNK UKN, UNK
     Route: 048
     Dates: start: 20101123, end: 20110610

REACTIONS (7)
  - HYPERKALAEMIA [None]
  - DRUG INTERACTION [None]
  - METABOLIC ACIDOSIS [None]
  - LOSS OF CONSCIOUSNESS [None]
  - RENAL FAILURE ACUTE [None]
  - MALAISE [None]
  - BLOOD PRESSURE DECREASED [None]
